FAERS Safety Report 9871933 (Version 1)
Quarter: 2014Q1

REPORT INFORMATION
  Report Type: Spontaneous
  Country: US (occurrence: US)
  Receive Date: 20140205
  Receipt Date: 20140205
  Transmission Date: 20141002
  Serious: No
  Sender: FDA-Public Use
  Company Number: US-GILEAD-2014-0093561

PATIENT
  Age: 92 Year
  Sex: Female

DRUGS (2)
  1. RANEXA [Suspect]
     Indication: PRODUCT USED FOR UNKNOWN INDICATION
     Dosage: 1000 MG, BID
     Route: 065
     Dates: start: 201401
  2. RANEXA [Suspect]
     Dosage: 500 MG, BID
     Route: 065
     Dates: start: 2013, end: 201401

REACTIONS (1)
  - Abnormal dreams [Unknown]
